FAERS Safety Report 6265279-2 (Version None)
Quarter: 2009Q3

REPORT INFORMATION
  Report Type: 
  Country: None (occurrence: None)
  Receive Date: 20090713
  Receipt Date: 20090611
  Transmission Date: 20100115
  Serious: No
  Sender: FDA-Public Use
  Company Number: US-BAYER-200923598NA

PATIENT
  Sex: Male

DRUGS (1)
  1. AVELOX [Suspect]
     Indication: DRUG USE FOR UNKNOWN INDICATION
     Dosage: TOTAL DAILY DOSE: 400 MG  UNIT DOSE: 400 MG
     Route: 048
     Dates: start: 20090611, end: 20090611

REACTIONS (7)
  - ERYTHEMA [None]
  - HYPERSENSITIVITY [None]
  - LOCAL SWELLING [None]
  - OEDEMA PERIPHERAL [None]
  - SWELLING [None]
  - SWELLING FACE [None]
  - URTICARIA [None]
